FAERS Safety Report 14658050 (Version 2)
Quarter: 2018Q4

REPORT INFORMATION
  Report Type: Report from Study
  Country: DE (occurrence: DE)
  Receive Date: 20180320
  Receipt Date: 20181003
  Transmission Date: 20190204
  Serious: Yes (Other)
  Sender: FDA-Public Use
  Company Number: DE-ROCHE-2089067

PATIENT
  Age: 41 Year
  Sex: Male
  Weight: 88 kg

DRUGS (20)
  1. URBASON [Concomitant]
     Active Substance: METHYLPREDNISOLONE
     Route: 048
     Dates: start: 20171022, end: 20171025
  2. COBIMETINIB. [Suspect]
     Active Substance: COBIMETINIB
     Indication: MALIGNANT MELANOMA
     Dosage: (THREE, 20 MG TABLETS) ON DAYS 1 TO 21 ?DATE OF MOST RECENT DOSE OF COBIMETINIB (60 MG) PRIOR TO SAE
     Route: 048
     Dates: start: 20170602
  3. FLUTIFORM [Concomitant]
     Active Substance: FLUTICASONE PROPIONATE\FORMOTEROL FUMARATE
     Indication: HYPERSENSITIVITY
     Route: 065
     Dates: start: 20170602
  4. URBASON [Concomitant]
     Active Substance: METHYLPREDNISOLONE
     Indication: GAMMA-GLUTAMYLTRANSFERASE INCREASED
     Route: 048
     Dates: start: 20170925, end: 20171001
  5. MEKINIST [Concomitant]
     Active Substance: TRAMETINIB DIMETHYL SULFOXIDE
     Indication: NEOPLASM MALIGNANT
     Route: 048
     Dates: start: 20171206, end: 20180305
  6. TAFINLAR [Concomitant]
     Active Substance: DABRAFENIB MESYLATE
     Indication: NEOPLASM MALIGNANT
     Route: 048
     Dates: start: 20171206, end: 20180305
  7. VEMURAFENIB. [Suspect]
     Active Substance: VEMURAFENIB
     Indication: MALIGNANT MELANOMA
     Dosage: DATE OF MOST RECENT DOSE OF VEMURAFENIB (2 TABLETS) PRIOR TO AE ONSET: 15/JUN/2017
     Route: 048
     Dates: start: 20170602
  8. URBASON [Concomitant]
     Active Substance: METHYLPREDNISOLONE
     Route: 048
     Dates: start: 20171114
  9. URBASON [Concomitant]
     Active Substance: METHYLPREDNISOLONE
     Route: 048
     Dates: start: 20171009, end: 20171021
  10. URBASON [Concomitant]
     Active Substance: METHYLPREDNISOLONE
     Route: 048
     Dates: start: 20171107, end: 20171113
  11. PREDNISOLON [Concomitant]
     Active Substance: PREDNISOLONE
     Indication: HEPATIC ENZYME INCREASED
     Route: 048
     Dates: start: 20171206
  12. SILYMARIN [Concomitant]
     Active Substance: DIETARY SUPPLEMENT\HERBALS\MILK THISTLE
     Route: 048
     Dates: start: 20170825, end: 20170830
  13. PANTOZOL [Concomitant]
     Active Substance: PANTOPRAZOLE SODIUM
     Indication: PROPHYLAXIS
     Route: 048
     Dates: start: 20170927
  14. IMODIUM [Concomitant]
     Active Substance: LOPERAMIDE HYDROCHLORIDE
     Indication: DIARRHOEA
     Route: 048
     Dates: start: 20170602
  15. CURCUMIN [Concomitant]
     Active Substance: CURCUMIN
     Route: 048
     Dates: start: 20170825, end: 20170830
  16. URBASON [Concomitant]
     Active Substance: METHYLPREDNISOLONE
     Indication: HEPATIC ENZYME INCREASED
     Route: 048
     Dates: start: 20171002, end: 20171006
  17. URBASON [Concomitant]
     Active Substance: METHYLPREDNISOLONE
     Route: 048
     Dates: start: 20171007, end: 20171008
  18. URBASON [Concomitant]
     Active Substance: METHYLPREDNISOLONE
     Route: 048
     Dates: start: 20171026, end: 20171106
  19. NIVOLUMAB [Concomitant]
     Active Substance: NIVOLUMAB
     Indication: NEOPLASM MALIGNANT
     Dosage: 3 OTHER
     Route: 042
     Dates: start: 20180306
  20. CORTISON [Concomitant]
     Active Substance: CORTISONE ACETATE
     Indication: ERYTHEMA NODOSUM
     Route: 061
     Dates: start: 201708, end: 20170818

REACTIONS (1)
  - Blood creatine phosphokinase increased [Not Recovered/Not Resolved]

NARRATIVE: CASE EVENT DATE: 20170616
